FAERS Safety Report 16108395 (Version 2)
Quarter: 2019Q2

REPORT INFORMATION
  Report Type: Report from Study
  Country: None (occurrence: US)
  Receive Date: 20190323
  Receipt Date: 20190613
  Transmission Date: 20190711
  Serious: Yes (Death, Other)
  Sender: FDA-Public Use
  Company Number: US-ABBVIE-19K-163-2716496-00

PATIENT
  Sex: Male
  Weight: 109.87 kg

DRUGS (1)
  1. HUMIRA [Suspect]
     Active Substance: ADALIMUMAB
     Indication: RHEUMATOID ARTHRITIS
     Route: 058
     Dates: start: 20170628, end: 201902

REACTIONS (2)
  - Death [Fatal]
  - Wound [Recovered/Resolved]

NARRATIVE: CASE EVENT DATE: 2019
